FAERS Safety Report 16897745 (Version 1)
Quarter: 2019Q4

REPORT INFORMATION
  Report Type: Spontaneous
  Country: NL (occurrence: NL)
  Receive Date: 20191009
  Receipt Date: 20191009
  Transmission Date: 20200122
  Serious: Yes (Other)
  Sender: FDA-Public Use
  Company Number: NL-AUROBINDO-AUR-APL-2019-064994

PATIENT
  Age: 46 Year
  Sex: Male
  Weight: 83 kg

DRUGS (1)
  1. PAROXETIN FILM-COATED TABLET 20MG [Suspect]
     Active Substance: PAROXETINE
     Indication: PANIC DISORDER
     Dosage: 1 DOSAGE FORM, ONCE A DAY
     Route: 048
     Dates: start: 19960101

REACTIONS (3)
  - Muscle spasms [Unknown]
  - Suicidal ideation [Recovered/Resolved]
  - Insomnia [Recovered/Resolved]

NARRATIVE: CASE EVENT DATE: 20180806
